FAERS Safety Report 9638484 (Version 2)
Quarter: 2013Q4

REPORT INFORMATION
  Report Type: Spontaneous
  Country: NO (occurrence: NO)
  Receive Date: 20131022
  Receipt Date: 20131206
  Transmission Date: 20140711
  Serious: Yes (Hospitalization, Other)
  Sender: FDA-Public Use
  Company Number: PHHY2013NO117933

PATIENT
  Age: 42 Year
  Sex: Female

DRUGS (2)
  1. GILENYA [Suspect]
     Indication: RELAPSING-REMITTING MULTIPLE SCLEROSIS
     Dosage: 0.5 MG, BID
     Route: 048
     Dates: start: 20110911
  2. DOBUTAMINE [Suspect]
     Indication: STRESS ECHOCARDIOGRAM
     Dosage: 40 UG, UNK
     Route: 042
     Dates: start: 20130910, end: 20130910

REACTIONS (9)
  - Hypotension [Recovered/Resolved]
  - Nausea [Unknown]
  - Discomfort [Unknown]
  - Abdominal discomfort [Unknown]
  - Oropharyngeal discomfort [Unknown]
  - Chest discomfort [Unknown]
  - Dyspnoea [Unknown]
  - Angina pectoris [Unknown]
  - Overdose [Unknown]
